FAERS Safety Report 12599527 (Version 1)
Quarter: 2016Q3

REPORT INFORMATION
  Report Type: Spontaneous
  Country: US (occurrence: US)
  Receive Date: 20160727
  Receipt Date: 20160727
  Transmission Date: 20161109
  Serious: No
  Sender: FDA-Public Use
  Company Number: US-TORRENT-00001233

PATIENT
  Sex: Female

DRUGS (1)
  1. CARBAMAZEPINE. [Suspect]
     Active Substance: CARBAMAZEPINE
     Indication: TRIGEMINAL NEURALGIA
     Dosage: 2 TABLETS BY MOUTH 3 TIMES DAILY AS NEEDED
     Route: 048

REACTIONS (4)
  - Product substitution issue [Unknown]
  - Oral pain [Unknown]
  - Stomatitis [Unknown]
  - Mouth swelling [Unknown]

NARRATIVE: CASE EVENT DATE: 20160517
